FAERS Safety Report 14485572 (Version 1)
Quarter: 2018Q1

REPORT INFORMATION
  Report Type: Spontaneous
  Country: US (occurrence: US)
  Receive Date: 20180205
  Receipt Date: 20180205
  Transmission Date: 20180509
  Serious: Yes (Death, Hospitalization)
  Sender: FDA-Public Use
  Company Number: US-PFIZER INC-2018046196

PATIENT
  Age: 52 Year
  Sex: Female

DRUGS (9)
  1. ERTAPENEM. [Suspect]
     Active Substance: ERTAPENEM SODIUM
     Indication: DIVERTICULITIS
     Dosage: UNK (FOR 6 WEEKS OR UNTIL THE PATIENT WAS NO LONGER NEUTROPENIC)
  2. ACYCLOVIR. [Suspect]
     Active Substance: ACYCLOVIR
     Dosage: UNK
     Route: 042
  3. SORAFENIB [Concomitant]
     Active Substance: SORAFENIB
     Indication: ACUTE MYELOID LEUKAEMIA
     Dosage: UNK
  4. MICAFUNGIN [Suspect]
     Active Substance: MICAFUNGIN
     Dosage: UNK
     Route: 042
  5. CEFDINIR. [Suspect]
     Active Substance: CEFDINIR
     Indication: DIVERTICULITIS
     Dosage: UNK
  6. CEFTRIAXONE SODIUM. [Suspect]
     Active Substance: CEFTRIAXONE SODIUM
     Indication: DIVERTICULITIS
     Dosage: UNK
  7. POSACONAZOLE [Suspect]
     Active Substance: POSACONAZOLE
     Indication: PROPHYLAXIS
     Dosage: UNK
  8. METRONIDAZOLE. [Suspect]
     Active Substance: METRONIDAZOLE
     Indication: DIVERTICULITIS
     Dosage: UNK
  9. PIPERACILLIN/TAZOBACTAM [Suspect]
     Active Substance: PIPERACILLIN SODIUM\TAZOBACTAM SODIUM
     Indication: DIVERTICULITIS
     Dosage: UNK
     Route: 042

REACTIONS (1)
  - Drug ineffective [Fatal]
